FAERS Safety Report 12695671 (Version 3)
Quarter: 2017Q3

REPORT INFORMATION
  Report Type: Spontaneous
  Country: JP (occurrence: JP)
  Receive Date: 20160829
  Receipt Date: 20170711
  Transmission Date: 20171127
  Serious: Yes (Hospitalization, Other)
  Sender: FDA-Public Use
  Company Number: JP-JNJFOC-20160807420

PATIENT
  Age: 65 Year
  Sex: Male

DRUGS (1)
  1. RIVAROXABAN [Suspect]
     Active Substance: RIVAROXABAN
     Indication: THROMBOSIS PROPHYLAXIS
     Route: 048
     Dates: start: 201405, end: 20140829

REACTIONS (5)
  - Vascular occlusion [Not Recovered/Not Resolved]
  - Drug ineffective [Unknown]
  - Intraventricular haemorrhage [Recovered/Resolved]
  - Skin ulcer [Not Recovered/Not Resolved]
  - Haemorrhagic infarction [Recovered/Resolved]

NARRATIVE: CASE EVENT DATE: 20140812
